FAERS Safety Report 23499757 (Version 2)
Quarter: 2024Q1

REPORT INFORMATION
  Report Type: Spontaneous
  Country: AT (occurrence: AT)
  Receive Date: 20240208
  Receipt Date: 20240311
  Transmission Date: 20240410
  Serious: Yes (Other)
  Sender: FDA-Public Use
  Company Number: AT-AMGEN-AUTSP2024021801

PATIENT
  Age: 81 Year
  Sex: Male

DRUGS (5)
  1. PROLIA [Suspect]
     Active Substance: DENOSUMAB
     Indication: Product used for unknown indication
     Dosage: UNK
     Route: 065
  2. OLAPARIB [Concomitant]
     Active Substance: OLAPARIB
     Dosage: UNK
     Dates: start: 202104
  3. CABAZITAXEL [Concomitant]
     Active Substance: CABAZITAXEL
     Dosage: UNK
     Dates: start: 202209
  4. CABAZITAXEL [Concomitant]
     Active Substance: CABAZITAXEL
     Dosage: 2 WEEKS AFTER CABAZITAXEL REDUCED GENERAL CONDITION
     Dates: start: 202209
  5. CABAZITAXEL [Concomitant]
     Active Substance: CABAZITAXEL
     Dosage: 6 IH CYCLE CABAZITAXEL
     Dates: start: 202302

REACTIONS (4)
  - Osteonecrosis [Unknown]
  - Leukopenia [Unknown]
  - General physical health deterioration [Unknown]
  - Prostatic specific antigen increased [Unknown]

NARRATIVE: CASE EVENT DATE: 20220301
